FAERS Safety Report 4662000-6 (Version None)
Quarter: 2005Q2

REPORT INFORMATION
  Report Type: 
  Country: None (occurrence: None)
  Receive Date: 20050512
  Receipt Date: 20050429
  Transmission Date: 20051028
  Serious: Yes (Other)
  Sender: FDA-Public Use
  Company Number: 2005068352

PATIENT
  Age: 78 Year
  Sex: Female
  Weight: 68.0396 kg

DRUGS (1)
  1. DETROL [Suspect]
     Indication: URGE INCONTINENCE
     Dosage: ORAL
     Route: 048
     Dates: start: 20000101

REACTIONS (4)
  - BLADDER OPERATION [None]
  - CYSTITIS [None]
  - DRUG INEFFECTIVE [None]
  - DRY MOUTH [None]
